FAERS Safety Report 19575220 (Version 1)
Quarter: 2021Q3

REPORT INFORMATION
  Report Type: Spontaneous
  Country: US (occurrence: US)
  Receive Date: 20210719
  Receipt Date: 20210719
  Transmission Date: 20211014
  Serious: No
  Sender: FDA-Public Use
  Company Number: US-TEVA-2021-US-1933863

PATIENT
  Sex: Male

DRUGS (5)
  1. EUCRISA [Concomitant]
     Active Substance: CRISABOROLE
  2. CINQAIR [Suspect]
     Active Substance: RESLIZUMAB
     Route: 065
  3. DUPIXENT [Suspect]
     Active Substance: DUPILUMAB
     Indication: ASTHMA
     Dosage: QOW
     Route: 058
  4. EPICERAM [Concomitant]
     Active Substance: DEVICE
  5. MOMETASONE [Concomitant]
     Active Substance: MOMETASONE

REACTIONS (11)
  - Weight increased [Unknown]
  - Sleep apnoea syndrome [Unknown]
  - Heart rate increased [Unknown]
  - Tremor [Unknown]
  - Chest discomfort [Unknown]
  - Ear discomfort [Unknown]
  - Asthma [Unknown]
  - Dyspnoea [Unknown]
  - Vitamin D deficiency [Unknown]
  - Dry eye [Unknown]
  - Dry skin [Unknown]
